FAERS Safety Report 23637459 (Version 1)
Quarter: 2024Q1

REPORT INFORMATION
  Report Type: Spontaneous
  Country: US (occurrence: US)
  Receive Date: 20240315
  Receipt Date: 20240315
  Transmission Date: 20240410
  Serious: No
  Sender: FDA-Public Use
  Company Number: US-VIIV HEALTHCARE LIMITED-US2024029899

PATIENT
  Age: 52 Year
  Sex: Female
  Weight: 93.4 kg

DRUGS (3)
  1. TRIUMEQ [Suspect]
     Active Substance: ABACAVIR SULFATE\DOLUTEGRAVIR SODIUM\LAMIVUDINE
     Indication: HIV infection
     Dosage: UNK
  2. INFLUENZA VIRUS VACCINE [Suspect]
     Active Substance: INFLUENZA VIRUS VACCINE
     Indication: Prophylaxis
     Dosage: UNK
     Dates: start: 202310
  3. PFIZER-BIONTECH COVID-19 VACCINE [Suspect]
     Active Substance: TOZINAMERAN
     Indication: Prophylaxis
     Dosage: UNK
     Dates: start: 202109

REACTIONS (9)
  - Arthralgia [Unknown]
  - Emotional disorder [Unknown]
  - Anxiety [Unknown]
  - Sleep disorder [Unknown]
  - Osteoarthritis [Unknown]
  - Obesity [Unknown]
  - Glucose tolerance impaired [Unknown]
  - Essential hypertension [Unknown]
  - Joint range of motion decreased [Unknown]

NARRATIVE: CASE EVENT DATE: 20240306
